FAERS Safety Report 8862748 (Version 1)
Quarter: 2012Q4

REPORT INFORMATION
  Report Type: 
  Country: US (occurrence: US)
  Receive Date: 20121026
  Receipt Date: 20121026
  Transmission Date: 20130627
  Serious: No
  Sender: FDA-Public Use
  Company Number: US-ALLERGAN-1212694US

PATIENT
  Age: 62 Year
  Sex: Male

DRUGS (9)
  1. ALPHAGAN P [Suspect]
     Indication: GLAUCOMA
     Dosage: 2 Gtt, bid
     Route: 047
     Dates: start: 20120910
  2. NIASPAN [Concomitant]
     Indication: DRUG USE FOR UNKNOWN INDICATION
  3. ASPIRIN [Concomitant]
     Indication: DRUG USE FOR UNKNOWN INDICATION
     Dosage: 81 mg, UNK
     Route: 048
  4. ALFUZOSIN [Concomitant]
     Indication: PROSTATIC HYPERTROPHY
     Dosage: 10 mg, UNK
     Route: 048
  5. VITAMIN D NOS [Concomitant]
     Indication: DRUG USE FOR UNKNOWN INDICATION
  6. CALCIUM [Concomitant]
     Indication: DRUG USE FOR UNKNOWN INDICATION
  7. LEVOTHYROXINE [Concomitant]
     Indication: DRUG USE FOR UNKNOWN INDICATION
     Dosage: 0.075 mg, UNK
     Route: 048
  8. OMEPRAZOLE [Concomitant]
     Indication: GERD
     Dosage: 20 mg, UNK
     Route: 048
  9. TRAZODONE [Concomitant]
     Indication: INSOMNIA
     Dosage: 50 mg, qhs
     Route: 048

REACTIONS (4)
  - Defaecation urgency [Unknown]
  - Diarrhoea [Unknown]
  - Abdominal discomfort [Unknown]
  - Dizziness [Not Recovered/Not Resolved]
